FAERS Safety Report 10201551 (Version 1)
Quarter: 2014Q2

REPORT INFORMATION
  Report Type: Spontaneous
  Country: CN (occurrence: CN)
  Receive Date: 20140528
  Receipt Date: 20140528
  Transmission Date: 20141212
  Serious: Yes (Other)
  Sender: FDA-Public Use
  Company Number: CN-009507513-1405CHN010994

PATIENT
  Age: 34 Year
  Sex: Female

DRUGS (6)
  1. TIENAM [Suspect]
     Indication: INFECTION
     Dosage: 1.0 G, Q8H
     Route: 042
     Dates: start: 20111115, end: 201111
  2. AMBROXOL HYDROCHLORIDE [Concomitant]
  3. CEFTAZIDIME [Concomitant]
     Dosage: 2.0 G, BID
     Route: 042
  4. ASCORBIC ACID [Concomitant]
  5. PYRIDOXINE [Concomitant]
  6. METHYLPREDNISOLONE SODIUM SUCCINATE [Concomitant]

REACTIONS (1)
  - Epilepsy [Recovered/Resolved]
